FAERS Safety Report 5284429-8 (Version None)
Quarter: 2007Q1

REPORT INFORMATION
  Report Type: 
  Country: None (occurrence: None)
  Receive Date: 20070330
  Receipt Date: 20070330
  Transmission Date: 20070707
  Serious: Yes (Hospitalization)
  Sender: FDA-Public Use
  Company Number: None

PATIENT
  Age: 53 Year
  Sex: Female
  Weight: 148.3262 kg

DRUGS (20)
  1. LISINOPRIL [Suspect]
     Indication: HYPERTENSION
     Dosage: 20 MG DAILY PO
     Route: 048
     Dates: start: 20050201, end: 20070307
  2. SULFAMETHAXAZOLE/TRIMETHOPRIM [Suspect]
     Indication: CELLULITIS
     Dosage: 2 TABS BID PO
     Route: 048
     Dates: start: 20070303, end: 20070308
  3. PREDNISONE TAB [Concomitant]
  4. ALBUTEROL [Concomitant]
  5. ASPIRIN [Concomitant]
  6. CITALOPRAM HYDROBROMIDE [Concomitant]
  7. FORMOTEROL FUMARATE [Concomitant]
  8. HYDROCODONE [Concomitant]
  9. LISINOPRIL [Concomitant]
  10. METFORMIN [Concomitant]
  11. METHOCARBAMOL [Concomitant]
  12. MOMETASONE FUROATE [Concomitant]
  13. MORPHINE [Concomitant]
  14. NICOTINE [Concomitant]
  15. OMEPRAZOLE [Concomitant]
  16. PROMETHAZINE [Concomitant]
  17. DOCUSATE NA [Concomitant]
  18. SIMVASTATIN [Concomitant]
  19. SULFAMETHOXAZOLE [Concomitant]
  20. TOLTERODINE TARTRATE [Concomitant]

REACTIONS (11)
  - CELLULITIS [None]
  - CONFUSIONAL STATE [None]
  - DELIRIUM [None]
  - HYPERKALAEMIA [None]
  - HYPOVOLAEMIA [None]
  - IMPAIRED SELF-CARE [None]
  - RENAL DISORDER [None]
  - RENAL FAILURE ACUTE [None]
  - SCREAMING [None]
  - SEPSIS [None]
  - TREATMENT NONCOMPLIANCE [None]
